FAERS Safety Report 7501892-X (Version None)
Quarter: 2011Q2

REPORT INFORMATION
  Report Type: 
  Country: None (occurrence: None)
  Receive Date: 20110525
  Receipt Date: 20110518
  Transmission Date: 20111010
  Serious: Yes (Hospitalization)
  Sender: FDA-Public Use
  Company Number: DE-JNJFOC-20110503848

PATIENT
  Age: 9 Decade
  Sex: Female
  Weight: 91 kg

DRUGS (7)
  1. TAPENTADOL [Suspect]
     Route: 048
     Dates: end: 20101224
  2. METAMIZOLE [Concomitant]
     Indication: PAIN
     Route: 065
  3. NSAIDS [Concomitant]
     Indication: PAIN
     Route: 065
  4. AMITRIPTYLINE HCL [Concomitant]
  5. TAPENTADOL [Suspect]
     Indication: ARTHRALGIA
     Route: 048
     Dates: start: 20101027
  6. TAPENTADOL [Suspect]
     Route: 048
     Dates: end: 20101224
  7. TAPENTADOL [Suspect]
     Indication: BACK PAIN
     Route: 048
     Dates: start: 20101027

REACTIONS (1)
  - FALL [None]
